FAERS Safety Report 5821175-3 (Version None)
Quarter: 2008Q3

REPORT INFORMATION
  Report Type: 
  Country: None (occurrence: None)
  Receive Date: 20080721
  Receipt Date: 20080708
  Transmission Date: 20090109
  Serious: Yes (Other)
  Sender: FDA-Public Use
  Company Number: 236470J08USA

PATIENT
  Age: 39 Year
  Sex: Male

DRUGS (5)
  1. REBIF [Suspect]
     Indication: MULTIPLE SCLEROSIS
     Dosage: 44 MCG, 3 IN 1 WEEKS, SUBCUTANEOUS
     Route: 058
     Dates: start: 20080215
  2. EFFEXOR [Concomitant]
  3. FLONASE [Concomitant]
  4. ALLEGRA [Concomitant]
  5. HYDROCORTISONE (HYDROCORTISONE /00028601/) [Concomitant]

REACTIONS (2)
  - BASAL CELL CARCINOMA [None]
  - PRECANCEROUS SKIN LESION [None]
